FAERS Safety Report 5366303-1 (Version None)
Quarter: 2007Q2

REPORT INFORMATION
  Report Type: 
  Country: None (occurrence: None)
  Receive Date: 20070619
  Receipt Date: 20070619
  Transmission Date: 20071010
  Serious: Yes (Hospitalization)
  Sender: FDA-Public Use
  Company Number: None

PATIENT
  Age: 64 Year
  Sex: Female
  Weight: 76.2043 kg

DRUGS (2)
  1. LACTULOSE 30 ML [Suspect]
     Indication: DIABETES MELLITUS
     Dosage: 30 ML TID ORAL
     Route: 048
     Dates: start: 20050801, end: 20070501
  2. REGLAN [Suspect]
     Indication: DYSPEPSIA
     Dosage: 10 MG QID ORAL
     Route: 048
     Dates: start: 20040401, end: 20070507

REACTIONS (6)
  - ANAEMIA [None]
  - CHEST PAIN [None]
  - DEEP VEIN THROMBOSIS [None]
  - MELAENA [None]
  - PULMONARY EMBOLISM [None]
  - PYREXIA [None]
